FAERS Safety Report 25840819 (Version 1)
Quarter: 2025Q3

REPORT INFORMATION
  Report Type: Spontaneous
  Country: US (occurrence: None)
  Receive Date: 20250923
  Receipt Date: 20250923
  Transmission Date: 20251020
  Serious: Yes (Hospitalization)
  Sender: FDA-CTU
  Company Number: None

PATIENT
  Age: 5 Year
  Sex: Female

DRUGS (5)
  1. TOBRAMYCIN [Suspect]
     Active Substance: TOBRAMYCIN
     Indication: Bacterial infection
     Route: 055
  2. CLARITIN [Concomitant]
     Active Substance: LORATADINE
  3. FAMOTIDINE [Concomitant]
     Active Substance: FAMOTIDINE
  4. PULMICORT INH [Concomitant]
  5. XOPENEX HFA [Concomitant]
     Active Substance: LEVALBUTEROL TARTRATE

REACTIONS (3)
  - Pseudomonas infection [None]
  - Symptom recurrence [None]
  - Therapy interrupted [None]

NARRATIVE: CASE EVENT DATE: 20250918
